FAERS Safety Report 7401509-9 (Version None)
Quarter: 2011Q2

REPORT INFORMATION
  Report Type: 
  Country: None (occurrence: None)
  Receive Date: 20110408
  Receipt Date: 20110331
  Transmission Date: 20111010
  Serious: Yes (Hospitalization)
  Sender: FDA-Public Use
  Company Number: US-BIOGENIDEC-2010BI035722

PATIENT
  Age: 62 Year
  Sex: Female

DRUGS (3)
  1. TYSABRI [Suspect]
     Indication: MULTIPLE SCLEROSIS
     Route: 042
     Dates: start: 20090318, end: 20090914
  2. MORPHINE [Concomitant]
  3. TYSABRI [Suspect]
     Route: 042
     Dates: start: 20100318

REACTIONS (13)
  - VISUAL IMPAIRMENT [None]
  - NEOPLASM [None]
  - HEART RATE IRREGULAR [None]
  - LIGAMENT RUPTURE [None]
  - CORONARY ARTERY OCCLUSION [None]
  - MULTIPLE SCLEROSIS [None]
  - CRYING [None]
  - HALLUCINATION [None]
  - TENDON RUPTURE [None]
  - PAIN IN EXTREMITY [None]
  - KNEE ARTHROPLASTY [None]
  - FALL [None]
  - MEMORY IMPAIRMENT [None]
